FAERS Safety Report 23108937 (Version 1)
Quarter: 2023Q4

REPORT INFORMATION
  Report Type: Spontaneous
  Country: CN (occurrence: CN)
  Receive Date: 20231026
  Receipt Date: 20231026
  Transmission Date: 20240110
  Serious: Yes (Death)
  Sender: FDA-Public Use
  Company Number: CN-PFIZER INC-PV202300173919

PATIENT
  Age: 66 Year
  Sex: Female

DRUGS (2)
  1. SOLU-MEDROL [Suspect]
     Active Substance: METHYLPREDNISOLONE SODIUM SUCCINATE
     Indication: Platelet count decreased
     Dosage: 2 MG/KG, DAILY
     Route: 040
  2. THROMBOPOIETIN [Suspect]
     Active Substance: THROMBOPOIETIN
     Dosage: 15000 IU, DAILY
     Route: 058

REACTIONS (1)
  - Drug ineffective [Fatal]
